FAERS Safety Report 4415277-6 (Version None)
Quarter: 2004Q3

REPORT INFORMATION
  Report Type: 
  Country: None (occurrence: None)
  Receive Date: 20040730
  Receipt Date: 20040722
  Transmission Date: 20050211
  Serious: Yes (Hospitalization)
  Sender: FDA-Public Use
  Company Number: 04P-062-0262472-00

PATIENT
  Age: 32 Year
  Sex: Female
  Weight: 65 kg

DRUGS (9)
  1. KLACID FILMTABLETTEN (BIAXIN) (CLARITHROMYCIN) (CLARITHROMYCIN) [Suspect]
     Indication: SUICIDE ATTEMPT
     Dosage: 250 MG, 10 IN ONCE, PER ORAL
     Route: 048
     Dates: start: 20040531, end: 20040531
  2. ACETAMINOPHEN [Suspect]
     Indication: SUICIDE ATTEMPT
     Dosage: 500 MG , 6 IN ONCE, PER ORAL
     Route: 048
     Dates: start: 20040531, end: 20040531
  3. A.P.C. [Suspect]
     Indication: SUICIDE ATTEMPT
     Dosage: 1 TABLET, 20 IN ONCE, PER ORAL
     Route: 048
     Dates: start: 20040531, end: 20040531
  4. GRIPPOSTAD C [Suspect]
     Indication: SUICIDE ATTEMPT
     Dosage: 1 TABLET, 20 IN ONCE, PER ORAL
     Route: 048
     Dates: start: 20040531, end: 20040531
  5. DICLOFENAC [Suspect]
     Indication: SUICIDE ATTEMPT
     Dosage: 50 MG, 20 IN ONCE, PER ORAL
     Route: 048
     Dates: start: 20040531, end: 20040531
  6. VOLTAREN [Suspect]
     Indication: SUICIDE ATTEMPT
     Dosage: 50 MG, 8 IN D, PER ORAL
     Route: 048
     Dates: start: 20040531, end: 20040531
  7. POTASSIUM IODIDE [Suspect]
     Indication: SUICIDE ATTEMPT
     Dosage: 0.2 MG, 25 IN ONCE, EPR ORAL
     Route: 048
     Dates: start: 20040531, end: 20040531
  8. LEFAX KAUTABLETTEN [Suspect]
     Indication: SUICIDE ATTEMPT
     Dosage: 1 TABLET,  10 IN ONCE, PER ORAL
     Route: 048
     Dates: start: 20040531, end: 20040531
  9. GELOMYRTOL FORTE [Suspect]
     Indication: SUICIDE ATTEMPT
     Dosage: 1 CAPSULE, 10 IN ONCE, PER ORAL
     Route: 048
     Dates: start: 20040531, end: 20040531

REACTIONS (6)
  - FATIGUE [None]
  - INTENTIONAL OVERDOSE [None]
  - NAUSEA [None]
  - SOMNOLENCE [None]
  - SUICIDE ATTEMPT [None]
  - VOMITING [None]
